FAERS Safety Report 13896593 (Version 1)
Quarter: 2017Q3

REPORT INFORMATION
  Report Type: Spontaneous
  Country: SE (occurrence: SE)
  Receive Date: 20170823
  Receipt Date: 20170823
  Transmission Date: 20171127
  Serious: Yes (Hospitalization, Other)
  Sender: FDA-Public Use
  Company Number: SE-APOTEX-2017AP016351

PATIENT
  Age: 1 Year
  Sex: Male

DRUGS (5)
  1. CYCLOSPORINE. [Suspect]
     Active Substance: CYCLOSPORINE
     Dosage: DOSE REDUCED
     Route: 065
  2. FLUDARABINE [Concomitant]
     Active Substance: FLUDARABINE PHOSPHATE
     Indication: PRODUCT USED FOR UNKNOWN INDICATION
     Dosage: 150 MG/M2, UNK
     Route: 065
  3. TREOSULFAN [Concomitant]
     Active Substance: TREOSULFAN
     Indication: PRODUCT USED FOR UNKNOWN INDICATION
     Dosage: 36 MG/M2, UNK
     Route: 065
  4. MYCOPHENOLATE [Suspect]
     Active Substance: MYCOPHENOLIC ACID
     Indication: GRAFT VERSUS HOST DISEASE IN GASTROINTESTINAL TRACT
     Dosage: UNK
     Route: 065
  5. CYCLOSPORINE. [Suspect]
     Active Substance: CYCLOSPORINE
     Indication: GRAFT VERSUS HOST DISEASE IN GASTROINTESTINAL TRACT
     Dosage: UNK
     Route: 065

REACTIONS (4)
  - Bacterial infection [Recovering/Resolving]
  - Condition aggravated [Recovering/Resolving]
  - Drug resistance [Unknown]
  - Graft versus host disease in gastrointestinal tract [Recovering/Resolving]
